FAERS Safety Report 13864102 (Version 1)
Quarter: 2017Q3

REPORT INFORMATION
  Report Type: Spontaneous
  Country: US (occurrence: US)
  Receive Date: 20170811
  Receipt Date: 20170811
  Transmission Date: 20171127
  Serious: Yes (Life-Threatening)
  Sender: FDA-Public Use
  Company Number: None

PATIENT
  Age: 82 Year
  Sex: Female

DRUGS (7)
  1. LISINOPRIL. [Concomitant]
     Active Substance: LISINOPRIL
  2. MAGNESIUM [Concomitant]
     Active Substance: MAGNESIUM
  3. HYDROCODENE-ACETOMINOPHEN 10-325MG [Suspect]
     Active Substance: ACETAMINOPHEN\HYDROCODONE
     Indication: PAIN
     Dosage: ?          QUANTITY:120 TABLET(S);?
     Route: 048
     Dates: start: 20170720, end: 20170811
  4. POTASSIUM [Concomitant]
     Active Substance: POTASSIUM
  5. VITAMIN B12 [Concomitant]
     Active Substance: CYANOCOBALAMIN
  6. VITAMIN D [Concomitant]
     Active Substance: CHOLECALCIFEROL
  7. INHALER [Concomitant]
     Active Substance: UNSPECIFIED INGREDIENT

REACTIONS (6)
  - Pruritus [None]
  - Cough [None]
  - Oral mucosal eruption [None]
  - Rash generalised [None]
  - Headache [None]
  - Hypersomnia [None]

NARRATIVE: CASE EVENT DATE: 20170720
